FAERS Safety Report 8296785-7 (Version None)
Quarter: 2012Q2

REPORT INFORMATION
  Report Type: 
  Country: None (occurrence: None)
  Receive Date: 20120419
  Receipt Date: 20120412
  Transmission Date: 20120825
  Serious: Yes (Hospitalization)
  Sender: FDA-Public Use
  Company Number: US-BRISTOL-MYERS SQUIBB COMPANY-16451551

PATIENT
  Age: 64 Year
  Sex: Male

DRUGS (2)
  1. MDX-1106 [Suspect]
     Indication: MALIGNANT MELANOMA
     Dosage: NO.OF COURSES:2
     Route: 042
     Dates: start: 20120214
  2. IPILIMUMAB [Suspect]
     Indication: MALIGNANT MELANOMA
     Route: 042
     Dates: start: 20120214

REACTIONS (3)
  - HYPOTENSION [None]
  - DEHYDRATION [None]
  - RENAL FAILURE ACUTE [None]
